FAERS Safety Report 23565341 (Version 1)
Quarter: 2024Q1

REPORT INFORMATION
  Report Type: Spontaneous
  Country: US (occurrence: US)
  Receive Date: 20240226
  Receipt Date: 20240226
  Transmission Date: 20240410
  Serious: Yes (Hospitalization)
  Sender: FDA-Public Use
  Company Number: US-BRACCO-2024US00892

PATIENT
  Sex: Female

DRUGS (3)
  1. PROHANCE [Suspect]
     Active Substance: GADOTERIDOL
     Indication: Magnetic resonance imaging joint
     Dosage: 15 ML, SINGLE
     Route: 042
     Dates: start: 20240219, end: 20240219
  2. SODIUM CHLORIDE [Concomitant]
     Active Substance: SODIUM CHLORIDE
     Indication: Diagnostic procedure
     Dosage: UNK UNK, SINGLE
     Route: 042
     Dates: start: 20240219, end: 20240219
  3. OZEMPIC [Concomitant]
     Active Substance: SEMAGLUTIDE

REACTIONS (6)
  - Fall [Recovered/Resolved]
  - Moaning [Recovered/Resolved]
  - Aphasia [Recovered/Resolved]
  - Speech disorder [Recovered/Resolved]
  - Incoherent [Recovered/Resolved]
  - Cold sweat [Recovered/Resolved]

NARRATIVE: CASE EVENT DATE: 20240219
